FAERS Safety Report 9317923 (Version 1)
Quarter: 2013Q2

REPORT INFORMATION
  Report Type: Spontaneous
  Country: US (occurrence: US)
  Receive Date: 20130530
  Receipt Date: 20130530
  Transmission Date: 20140414
  Serious: No
  Sender: FDA-Public Use
  Company Number: US-GLAXOSMITHKLINE-A0995627A

PATIENT
  Age: 59 Year
  Sex: Female

DRUGS (4)
  1. VENTOLIN [Suspect]
     Indication: WHEEZING
     Dosage: 2PUFF TWICE PER DAY
     Route: 055
     Dates: start: 20120927, end: 20120927
  2. UNKNOWN MEDICATION [Concomitant]
  3. AZITHROMYCIN [Concomitant]
  4. BENZONATATE [Concomitant]

REACTIONS (3)
  - Mydriasis [Recovered/Resolved]
  - Abnormal sensation in eye [Unknown]
  - Eye pain [Unknown]
